FAERS Safety Report 4290594-1 (Version None)
Quarter: 2004Q1

REPORT INFORMATION
  Report Type: 
  Country: None (occurrence: None)
  Receive Date: 20040203
  Receipt Date: 20040115
  Transmission Date: 20041129
  Serious: Yes (Death)
  Sender: FDA-Public Use
  Company Number: 234505

PATIENT
  Age: 15 Year
  Sex: Male
  Weight: 65 kg

DRUGS (15)
  1. NOVOSEVEN [Suspect]
     Indication: THROMBASTHENIA
     Dosage: SEE IMAGE
     Route: 042
     Dates: start: 20031201, end: 20031201
  2. NOVOSEVEN [Suspect]
     Indication: THROMBASTHENIA
     Dosage: SEE IMAGE
     Route: 042
     Dates: start: 20031202, end: 20031205
  3. NOVOSEVEN [Suspect]
     Indication: THROMBASTHENIA
     Dosage: SEE IMAGE
     Route: 042
     Dates: start: 20031211, end: 20031211
  4. NOVOSEVEN [Suspect]
     Indication: THROMBASTHENIA
     Dosage: SEE IMAGE
     Route: 042
     Dates: start: 20031212, end: 20031216
  5. NOVOSEVEN [Suspect]
     Indication: THROMBASTHENIA
     Dosage: SEE IMAGE
     Route: 042
     Dates: start: 20031217, end: 20031217
  6. NOVOSEVEN [Suspect]
  7. NOVOSEVEN [Suspect]
  8. DOPAMINE HCL [Concomitant]
  9. DOBUTAMINE (DOBUTAMINE) [Concomitant]
  10. AMICAR [Concomitant]
  11. PEPCID [Concomitant]
  12. MORPHINE [Concomitant]
  13. TYLENOL [Concomitant]
  14. ANTACID TAB [Concomitant]
  15. APHERESIS CRYO [Concomitant]

REACTIONS (22)
  - ABDOMINAL ADHESIONS [None]
  - ABDOMINAL MASS [None]
  - ACTIVATED PARTIAL THROMBOPLASTIN TIME PROLONGED [None]
  - APPENDICITIS PERFORATED [None]
  - ATELECTASIS [None]
  - FAECALITH [None]
  - GASTROINTESTINAL NECROSIS [None]
  - HYDRONEPHROSIS [None]
  - HYPOTENSION [None]
  - ILEUS PARALYTIC [None]
  - INTESTINAL ISCHAEMIA [None]
  - MEDIASTINAL DISORDER [None]
  - NAUSEA [None]
  - OPERATIVE HAEMORRHAGE [None]
  - PCO2 DECREASED [None]
  - PLEURAL EFFUSION [None]
  - PO2 DECREASED [None]
  - POST PROCEDURAL COMPLICATION [None]
  - THROMBOSIS [None]
  - TREATMENT NONCOMPLIANCE [None]
  - VOMITING [None]
  - X-RAY GASTROINTESTINAL TRACT ABNORMAL [None]
